FAERS Safety Report 17522495 (Version 2)
Quarter: 2020Q2

REPORT INFORMATION
  Report Type: Spontaneous
  Country: CZ (occurrence: CZ)
  Receive Date: 20200310
  Receipt Date: 20200406
  Transmission Date: 20200713
  Serious: Yes (Hospitalization)
  Sender: FDA-Public Use
  Company Number: CZ-TEVA-2020-CZ-1196670

PATIENT
  Age: 63 Year
  Sex: Male

DRUGS (8)
  1. PREDNISONE. [Suspect]
     Active Substance: PREDNISONE
     Indication: IMMUNOSUPPRESSANT DRUG THERAPY
     Dosage: .5 MG/KG DAILY; INITIAL DOSE
     Route: 065
  2. VORICONAZOLE. [Interacting]
     Active Substance: VORICONAZOLE
     Indication: EVIDENCE BASED TREATMENT
     Dosage: 400 MILLIGRAM DAILY;
     Route: 065
  3. THYMOGLOBULIN [Suspect]
     Active Substance: LAPINE T-LYMPHOCYTE IMMUNE GLOBULIN
     Indication: IMMUNOSUPPRESSANT DRUG THERAPY
     Route: 065
  4. VORICONAZOLE. [Interacting]
     Active Substance: VORICONAZOLE
     Indication: ANTIFUNGAL TREATMENT
  5. TACROLIMUS. [Interacting]
     Active Substance: TACROLIMUS
     Dosage: 1 MILLIGRAM DAILY; THE DAILY DOSE OF TACROLIMUS WAS REDUCED TO 30%
     Route: 065
  6. TACROLIMUS. [Interacting]
     Active Substance: TACROLIMUS
     Indication: IMMUNOSUPPRESSANT DRUG THERAPY
     Dosage: INITIAL TARGET LEVELS OF 10-15 G/ML
     Route: 065
  7. MYCOPHENOLATE MOFETIL. [Suspect]
     Active Substance: MYCOPHENOLATE MOFETIL
     Indication: IMMUNOSUPPRESSANT DRUG THERAPY
     Dosage: 2000 MILLIGRAM DAILY;
     Route: 065
  8. PREDNISONE. [Suspect]
     Active Substance: PREDNISONE
     Dosage: 20 MILLIGRAM DAILY; GRADUALLY DECREASED TO 20 MG/DAY DURING THE FIRST MONTH
     Route: 065

REACTIONS (2)
  - Drug interaction [Unknown]
  - Bronchopulmonary aspergillosis [Recovered/Resolved]
